FAERS Safety Report 11094725 (Version 1)
Quarter: 2015Q2

REPORT INFORMATION
  Report Type: Other
  Country: IT (occurrence: IT)
  Receive Date: 20150506
  Receipt Date: 20150506
  Transmission Date: 20150821
  Serious: Yes (Other)
  Sender: FDA-Public Use
  Company Number: IT-APOTEX-2015AP008669

PATIENT
  Age: 80 Year
  Sex: Female

DRUGS (1)
  1. DONEPEZIL [Suspect]
     Active Substance: DONEPEZIL
     Indication: DEMENTIA ALZHEIMER^S TYPE
     Dosage: 5 MG, QD
     Route: 048
     Dates: start: 20150117, end: 20150120

REACTIONS (5)
  - Dehydration [Unknown]
  - Vomiting [Unknown]
  - Weight decreased [Unknown]
  - Hypokalaemia [Unknown]
  - Asthenia [Unknown]

NARRATIVE: CASE EVENT DATE: 20150118
